FAERS Safety Report 7026653-X (Version None)
Quarter: 2010Q3

REPORT INFORMATION
  Report Type: 
  Country: None (occurrence: None)
  Receive Date: 20100930
  Receipt Date: 20100914
  Transmission Date: 20110219
  Serious: Yes (Other)
  Sender: FDA-Public Use
  Company Number: BVT-000648

PATIENT
  Age: 5 Year

DRUGS (1)
  1. KINERET [Suspect]
     Indication: OFF LABEL USE

REACTIONS (1)
  - ARRHYTHMIA [None]
